FAERS Safety Report 7019847-0 (Version None)
Quarter: 2010Q3

REPORT INFORMATION
  Report Type: 
  Country: None (occurrence: None)
  Receive Date: 20100923
  Receipt Date: 20100908
  Transmission Date: 20110219
  Serious: Yes (Hospitalization, Other)
  Sender: FDA-Public Use
  Company Number: 2010SP042034

PATIENT
  Age: 66 Year
  Sex: Female
  Weight: 78.0187 kg

DRUGS (13)
  1. CLARITIN [Suspect]
     Indication: HYPERSENSITIVITY
     Dosage: 10 MG;PO
     Route: 048
     Dates: start: 20100201, end: 20100201
  2. CLARITIN [Suspect]
     Indication: LACRIMATION INCREASED
     Dosage: 10 MG;PO
     Route: 048
     Dates: start: 20100201, end: 20100201
  3. CLARITIN [Suspect]
     Indication: RHINORRHOEA
     Dosage: 10 MG;PO
     Route: 048
     Dates: start: 20100201, end: 20100201
  4. CLARITIN [Suspect]
     Indication: SNEEZING
     Dosage: 10 MG;PO
     Route: 048
     Dates: start: 20100201, end: 20100201
  5. RITUXAN [Suspect]
  6. ZIAC [Suspect]
  7. REQUIP [Concomitant]
  8. WINRHO [Concomitant]
  9. DECADRON [Concomitant]
  10. STALEVO 100 [Concomitant]
  11. CALTRATE [Concomitant]
  12. NASONEX [Concomitant]
  13. PREDNISONE [Concomitant]

REACTIONS (4)
  - ANXIETY [None]
  - AUTOIMMUNE THROMBOCYTOPENIA [None]
  - BLOOD PRESSURE SYSTOLIC INCREASED [None]
  - RASH [None]
